FAERS Safety Report 9819615 (Version 1)
Quarter: 2014Q1

REPORT INFORMATION
  Report Type: Spontaneous
  Country: US (occurrence: US)
  Receive Date: 20140115
  Receipt Date: 20140115
  Transmission Date: 20141002
  Serious: Yes (Other)
  Sender: FDA-Public Use
  Company Number: US-CELGENEUS-163-20785-14011617

PATIENT
  Sex: Female
  Weight: 74.8 kg

DRUGS (1)
  1. THALOMID [Suspect]
     Indication: PLASMA CELL MYELOMA
     Dosage: 50 MILLIGRAM
     Route: 048
     Dates: start: 201111

REACTIONS (2)
  - VIIth nerve paralysis [Recovered/Resolved with Sequelae]
  - Erythema [Recovered/Resolved with Sequelae]
